FAERS Safety Report 5970822-4 (Version None)
Quarter: 2008Q4

REPORT INFORMATION
  Report Type: 
  Country: None (occurrence: None)
  Receive Date: 20081127
  Receipt Date: 20081117
  Transmission Date: 20090506
  Serious: Yes (Death, Hospitalization)
  Sender: FDA-Public Use
  Company Number: GB-RANBAXY-2008RR-19466

PATIENT
  Age: 52 Year
  Sex: Male

DRUGS (9)
  1. PARACETAMOL [Suspect]
     Indication: ANALGESIA
  2. AUGMENTIN '125' [Concomitant]
  3. DICLOFENAC SODIUM [Concomitant]
     Indication: ANALGESIA
  4. GENTAMICIN [Concomitant]
  5. LEVOFLOXACIN [Concomitant]
  6. METOCLOPRAMIDE [Concomitant]
  7. METRONIDAZOLE [Concomitant]
  8. OMEPRAZOLE [Concomitant]
  9. VANCOMYCIN [Concomitant]

REACTIONS (2)
  - METABOLIC ACIDOSIS [None]
  - MYOCARDIAL INFARCTION [None]
